FAERS Safety Report 9007806 (Version 1)
Quarter: 2013Q1

REPORT INFORMATION
  Report Type: Spontaneous
  Country: US (occurrence: US)
  Receive Date: 20130111
  Receipt Date: 20130111
  Transmission Date: 20140127
  Serious: No
  Sender: FDA-Public Use
  Company Number: US-009507513-1301USA002184

PATIENT
  Age: 57 Year
  Sex: Male
  Weight: 106.58 kg

DRUGS (3)
  1. VICTRELIS [Suspect]
     Indication: HEPATITIS C
     Dosage: 800 MG, TID
     Route: 048
  2. PEGASYS [Suspect]
     Dosage: 180 MICROGRAM, QW
     Route: 058
  3. RIBAPAK [Suspect]
     Dosage: 1200 UNK, QD
     Route: 048

REACTIONS (1)
  - Ammonia increased [Unknown]
